FAERS Safety Report 10008875 (Version 2)
Quarter: 2014Q1

REPORT INFORMATION
  Report Type: Spontaneous
  Country: US (occurrence: US)
  Receive Date: 20140312
  Receipt Date: 20140312
  Transmission Date: 20141002
  Serious: Yes (Other)
  Sender: FDA-Public Use
  Company Number: US-INCYTE CORPORATION-2012IN000627

PATIENT
  Age: 70 Year
  Sex: Male

DRUGS (8)
  1. JAKAFI [Suspect]
     Indication: MYELOFIBROSIS
     Dosage: 15 MG, BID
     Route: 048
     Dates: end: 20120415
  2. JAKAFI [Suspect]
     Dosage: 15 MG BID ALTERNATING WITH 7.5 MG QD AT LUNCH TIME
     Route: 048
     Dates: start: 20120416
  3. DECADRON [Concomitant]
     Dosage: 40 MG, WEEKLY
  4. PROCRIT [Concomitant]
     Dosage: UNK, PRN
  5. FINASTERIDE [Concomitant]
     Dosage: 5 MG, QD
     Route: 048
  6. LIPITOR [Concomitant]
     Dosage: 40 MG, QD
     Route: 048
  7. NEXIUM [Concomitant]
     Dosage: 40 MG, QD
     Route: 048
  8. ADVAIR [Concomitant]
     Dosage: 500/50 2 PUFFS, BID

REACTIONS (2)
  - Platelet count decreased [Unknown]
  - Wrong technique in drug usage process [None]
